FAERS Safety Report 16315251 (Version 2)
Quarter: 2019Q2

REPORT INFORMATION
  Report Type: Spontaneous
  Country: JP (occurrence: JP)
  Receive Date: 20190515
  Receipt Date: 20190606
  Transmission Date: 20190711
  Serious: Yes (Other)
  Sender: FDA-Public Use
  Company Number: JP-ASTRAZENECA-2019SE35445

PATIENT
  Age: 65 Year
  Sex: Female
  Weight: 58 kg

DRUGS (6)
  1. AMLODIN [Concomitant]
     Active Substance: AMLODIPINE BESYLATE
     Route: 048
  2. TENORMIN [Concomitant]
     Active Substance: ATENOLOL
     Route: 048
  3. FASLODEX [Suspect]
     Active Substance: FULVESTRANT
     Indication: BREAST CANCER FEMALE
     Route: 030
     Dates: start: 20180305, end: 20180402
  4. FASLODEX [Suspect]
     Active Substance: FULVESTRANT
     Indication: BREAST CANCER FEMALE
     Route: 030
     Dates: start: 20180507
  5. MAGNESIUM OXIDE. [Concomitant]
     Active Substance: MAGNESIUM OXIDE
     Route: 048
  6. WHITE PETROLATUM [Concomitant]
     Active Substance: PETROLATUM

REACTIONS (6)
  - Injection site necrosis [Not Recovered/Not Resolved]
  - Nausea [Unknown]
  - Injection site extravasation [Unknown]
  - Cough [Recovered/Resolved]
  - Feeling hot [Unknown]
  - Flushing [Recovered/Resolved]

NARRATIVE: CASE EVENT DATE: 20190225
